FAERS Safety Report 12803579 (Version 3)
Quarter: 2017Q1

REPORT INFORMATION
  Report Type: Report from Study
  Country: CN (occurrence: CN)
  Receive Date: 20161003
  Receipt Date: 20170221
  Transmission Date: 20170428
  Serious: Yes (Hospitalization)
  Sender: FDA-Public Use
  Company Number: CN-CELGENEUS-CHN-2016095347

PATIENT
  Age: 63 Year
  Sex: Female
  Weight: 53 kg

DRUGS (17)
  1. DOXORUBICIN [Suspect]
     Active Substance: DOXORUBICIN
     Indication: DIFFUSE LARGE B-CELL LYMPHOMA
     Dosage: 2.381 MILLIGRAM/SQ. METER
     Route: 041
     Dates: start: 20160426
  2. VINCRISTINE [Suspect]
     Active Substance: VINCRISTINE
     Dosage: .0667 MILLIGRAM/SQ. METER
     Route: 041
     Dates: start: 20160809
  3. METHOTREXATE. [Concomitant]
     Active Substance: METHOTREXATE
     Indication: DIFFUSE LARGE B-CELL LYMPHOMA
     Dosage: 6 GRAM
     Route: 065
     Dates: start: 20160924
  4. RITUXIMAB [Suspect]
     Active Substance: RITUXIMAB
     Indication: DIFFUSE LARGE B-CELL LYMPHOMA
     Dosage: 17.8571 MILLIGRAM/SQ. METER
     Route: 041
     Dates: start: 20160425
  5. PREDNISONE. [Suspect]
     Active Substance: PREDNISONE
     Dosage: 23.8095 MILLIGRAM/SQ. METER
     Route: 041
     Dates: start: 20160809
  6. METHOTREXATE. [Concomitant]
     Active Substance: METHOTREXATE
     Dosage: 6 GRAM
     Route: 065
     Dates: start: 20161003
  7. METHOTREXATE. [Concomitant]
     Active Substance: METHOTREXATE
     Dosage: 6 GRAM
     Route: 065
     Dates: start: 20161001
  8. ASPIRIN. [Concomitant]
     Active Substance: ASPIRIN
     Indication: THROMBOSIS PROPHYLAXIS
     Dosage: 100 MILLIGRAM
     Route: 048
     Dates: start: 20160430, end: 20160919
  9. DOXORUBICIN [Suspect]
     Active Substance: DOXORUBICIN
     Dosage: 2.381 MILLIGRAM/SQ. METER
     Route: 041
     Dates: start: 20160809
  10. PREDNISONE. [Suspect]
     Active Substance: PREDNISONE
     Indication: DIFFUSE LARGE B-CELL LYMPHOMA
     Dosage: 23.8095 MILLIGRAM
     Route: 041
     Dates: start: 20160426
  11. CALCIUM COMBINED WITH VITAMINE D [Concomitant]
     Indication: MINERAL SUPPLEMENTATION
     Dosage: 600 MILLIGRAM
     Route: 048
     Dates: start: 20160628
  12. CC-5013 [Suspect]
     Active Substance: LENALIDOMIDE
     Dosage: 10 MILLIGRAM
     Route: 048
     Dates: start: 20160809
  13. RITUXIMAB [Suspect]
     Active Substance: RITUXIMAB
     Dosage: 17.8571 MILLIGRAM/SQ. METER
     Route: 041
     Dates: start: 20160808
  14. CYCLOPHOSPHAMIDE. [Suspect]
     Active Substance: CYCLOPHOSPHAMIDE
     Dosage: 35.7143 MILLIGRAM/SQ. METER
     Route: 041
     Dates: start: 20160809
  15. CC-5013 [Suspect]
     Active Substance: LENALIDOMIDE
     Indication: DIFFUSE LARGE B-CELL LYMPHOMA
     Dosage: 10 MILLIGRAM
     Route: 048
     Dates: start: 20160426
  16. CYCLOPHOSPHAMIDE. [Suspect]
     Active Substance: CYCLOPHOSPHAMIDE
     Indication: DIFFUSE LARGE B-CELL LYMPHOMA
     Dosage: 35.7143 MILLIGRAM/SQ. METER
     Route: 041
     Dates: start: 20160426
  17. VINCRISTINE [Suspect]
     Active Substance: VINCRISTINE
     Indication: DIFFUSE LARGE B-CELL LYMPHOMA
     Dosage: .0667 MILLIGRAM/SQ. METER
     Route: 041
     Dates: start: 20160426

REACTIONS (2)
  - Hemiparesis [Not Recovered/Not Resolved]
  - Memory impairment [Not Recovered/Not Resolved]

NARRATIVE: CASE EVENT DATE: 20160914
